FAERS Safety Report 4716981-2 (Version None)
Quarter: 2005Q3

REPORT INFORMATION
  Report Type: 
  Country: None (occurrence: None)
  Receive Date: 20050715
  Receipt Date: 20050612
  Transmission Date: 20060218
  Serious: Yes (Hospitalization)
  Sender: FDA-Public Use
  Company Number: HQWYE169612JUL05

PATIENT
  Age: 75 Year
  Sex: Male

DRUGS (4)
  1. ANCARON (AMIODARONE, TABLET) [Suspect]
     Indication: VENTRICULAR TACHYCARDIA
     Dosage: 300 MG 1 X PER 1 DAY, 100 MG 1X PER 1 DAY
     Route: 048
     Dates: start: 20050625, end: 20050628
  2. TICLOPIDINE HCL [Suspect]
     Dosage: 200 MG 1X PER 1 DAY
     Route: 048
     Dates: start: 20050515
  3. CARVEDILOL [Concomitant]
  4. CALCIUM POLYSTYRENE SULFONATE (CALCIUM POLYSTYRENE SULFONATE) [Concomitant]

REACTIONS (2)
  - JAUNDICE [None]
  - LIVER DISORDER [None]
